FAERS Safety Report 10190994 (Version 1)
Quarter: 2014Q2

REPORT INFORMATION
  Report Type: Spontaneous
  Country: JP (occurrence: JP)
  Receive Date: 20140523
  Receipt Date: 20140523
  Transmission Date: 20141212
  Serious: Yes (Other)
  Sender: FDA-Public Use
  Company Number: JP-009507513-1405JPN008170

PATIENT
  Sex: Female

DRUGS (2)
  1. PEGINTRON [Suspect]
     Dosage: DAILY DOSE UNKNOWN
     Route: 058
     Dates: start: 201105, end: 201105
  2. REBETOL [Suspect]
     Dosage: DAILY DOSE UNKNOWN
     Route: 048
     Dates: start: 201105, end: 201105

REACTIONS (2)
  - Neutropenia [Unknown]
  - Otitis media chronic [Unknown]
